FAERS Safety Report 17988199 (Version 1)
Quarter: 2020Q3

REPORT INFORMATION
  Report Type: Spontaneous
  Country: US (occurrence: US)
  Receive Date: 20200706
  Receipt Date: 20200706
  Transmission Date: 20201103
  Serious: Yes (Hospitalization)
  Sender: FDA-Public Use
  Company Number: None

PATIENT
  Age: 24 Year
  Sex: Male

DRUGS (12)
  1. ACYCLOVIR. [Concomitant]
     Active Substance: ACYCLOVIR
  2. PANTOPRAZOLE [Concomitant]
     Active Substance: PANTOPRAZOLE
  3. STIMULANT [Concomitant]
     Active Substance: UNSPECIFIED INGREDIENT
  4. VITAMIN D3 [Concomitant]
     Active Substance: CHOLECALCIFEROL
  5. SOLIRIS [Suspect]
     Active Substance: ECULIZUMAB
     Indication: RENAL DISORDER
     Dosage: EVERY 2 WEEKS
     Route: 042
     Dates: start: 20200703
  6. PREDNISONE. [Concomitant]
     Active Substance: PREDNISONE
  7. SMZ/TMP DS [Concomitant]
     Active Substance: SULFAMETHOXAZOLE\TRIMETHOPRIM
  8. SOLIRIS [Suspect]
     Active Substance: ECULIZUMAB
     Indication: URETERAL DISORDER
     Dosage: EVERY 2 WEEKS
     Route: 042
     Dates: start: 20200703
  9. ENVARSUS XR [Concomitant]
     Active Substance: TACROLIMUS
  10. VALGANCICLOV [Concomitant]
  11. FLUCONAZOLE. [Concomitant]
     Active Substance: FLUCONAZOLE
  12. MYCOPHENOLIC [Concomitant]
     Active Substance: MYCOPHENOLIC ACID

REACTIONS (2)
  - Therapy interrupted [None]
  - Product distribution issue [None]

NARRATIVE: CASE EVENT DATE: 20200629
